FAERS Safety Report 4317286-4 (Version None)
Quarter: 2004Q1

REPORT INFORMATION
  Report Type: 
  Country: None (occurrence: None)
  Receive Date: 20040312
  Receipt Date: 20040302
  Transmission Date: 20041129
  Serious: Yes (Other)
  Sender: FDA-Public Use
  Company Number: GB-JNJFOC-20031100012

PATIENT
  Sex: Male

DRUGS (9)
  1. RISPERDAL [Suspect]
     Dosage: SEE IMAGE
     Route: 048
     Dates: start: 20030701, end: 20031001
  2. RISPERDAL [Suspect]
     Dosage: SEE IMAGE
     Route: 048
     Dates: start: 20031001
  3. CYCLOSPORINE [Concomitant]
  4. PENICILLIN [Concomitant]
  5. SEPTRIN (BACTRIM) [Concomitant]
  6. PREDNISOLONE [Concomitant]
  7. FLUCONAZOLE [Concomitant]
  8. ALPHAGAN [Concomitant]
  9. TRUSOPT [Concomitant]

REACTIONS (6)
  - ANAPHYLACTIC REACTION [None]
  - EXCITABILITY [None]
  - GAIT DISTURBANCE [None]
  - INCONTINENCE [None]
  - OPEN ANGLE GLAUCOMA [None]
  - VISION BLURRED [None]
